FAERS Safety Report 12403817 (Version 3)
Quarter: 2016Q2

REPORT INFORMATION
  Report Type: Spontaneous
  Country: PL (occurrence: PL)
  Receive Date: 20160525
  Receipt Date: 20160527
  Transmission Date: 20160815
  Serious: Yes (Death, Hospitalization, Other)
  Sender: FDA-Public Use
  Company Number: PL-ROCHE-1762517

PATIENT
  Sex: Female

DRUGS (1)
  1. KADCYLA [Suspect]
     Active Substance: ADO-TRASTUZUMAB EMTANSINE
     Indication: PRODUCT USED FOR UNKNOWN INDICATION
     Dosage: ONE DOUBLE DOSE
     Route: 065
     Dates: start: 20160408

REACTIONS (7)
  - Death [Fatal]
  - Coma [Unknown]
  - Decreased appetite [Unknown]
  - Loss of consciousness [Unknown]
  - Extra dose administered [Fatal]
  - Palpitations [Unknown]
  - Seizure [Unknown]
